FAERS Safety Report 7466157-3 (Version None)
Quarter: 2011Q2

REPORT INFORMATION
  Report Type: 
  Country: None (occurrence: None)
  Receive Date: 20110509
  Receipt Date: 20110428
  Transmission Date: 20111010
  Serious: Yes (Hospitalization)
  Sender: FDA-Public Use
  Company Number: GB-ASTRAZENECA-2011SE24669

PATIENT
  Age: 80 Year
  Sex: Female

DRUGS (12)
  1. ATENOLOL [Suspect]
     Indication: HYPERTENSION
     Route: 048
  2. ARTHROTEC [Interacting]
  3. LEVOTHYROXINE SODIUM [Interacting]
     Indication: HYPOTHYROIDISM
  4. ATENOLOL [Interacting]
     Indication: HYPERCHOLESTEROLAEMIA
     Route: 048
  5. ATENOLOL [Interacting]
     Route: 048
  6. ARTHROTEC [Interacting]
     Indication: ARTHRITIS
  7. PRAVASTATIN SODIUM [Interacting]
     Route: 048
  8. ATENOLOL [Interacting]
     Route: 048
  9. ARTHROTEC [Interacting]
     Indication: DEPRESSION
  10. ARTHROTEC [Interacting]
  11. AMITRIPTYLINE [Concomitant]
     Indication: COLITIS
     Route: 042
  12. ASPIRIN [Interacting]
     Indication: HYPERTENSION
     Route: 042

REACTIONS (10)
  - ABDOMINAL DISCOMFORT [None]
  - WEIGHT DECREASED [None]
  - LARGE INTESTINAL ULCER [None]
  - DIARRHOEA [None]
  - COLITIS [None]
  - DRUG LEVEL DECREASED [None]
  - DECREASED APPETITE [None]
  - DRUG INTERACTION [None]
  - ANAEMIA [None]
  - DEHYDRATION [None]
